FAERS Safety Report 5170798-6 (Version None)
Quarter: 2006Q4

REPORT INFORMATION
  Report Type: 
  Country: None (occurrence: None)
  Receive Date: 20061205
  Receipt Date: 20061205
  Transmission Date: 20070319
  Serious: Yes (Death)
  Sender: FDA-Public Use
  Company Number: None

PATIENT
  Age: 90 Year
  Sex: Female

DRUGS (5)
  1. AVASTIN [Suspect]
     Dosage: 6 WKS INTRAOCULAR
     Route: 031
     Dates: start: 20060414
  2. AVASTIN [Suspect]
     Dosage: 6 WKS INTRAOCULAR
     Route: 031
     Dates: start: 20060523
  3. AVASTIN [Suspect]
     Dosage: 6 WKS INTRAOCULAR
     Route: 031
     Dates: start: 20060628
  4. AVASTIN [Suspect]
     Dosage: 6 WKS INTRAOCULAR
     Route: 031
     Dates: start: 20060818
  5. AVASTIN [Suspect]
     Dosage: 6 WKS INTRAOCULAR
     Route: 031
     Dates: start: 20060928

REACTIONS (1)
  - DEATH [None]
